FAERS Safety Report 9820326 (Version 1)
Quarter: 2013Q4

REPORT INFORMATION
  Report Type: Spontaneous
  Country: US (occurrence: None)
  Receive Date: 20131223
  Receipt Date: 20131223
  Transmission Date: 20140711
  Serious: No
  Sender: FDA-Public Use
  Company Number: 220435

PATIENT
  Age: 74 Year
  Sex: Male

DRUGS (1)
  1. PICATO [Suspect]
     Indication: ACTINIC KERATOSIS
     Dosage: DAILY FOR 3 DAYS
     Dates: start: 20130131, end: 20130202

REACTIONS (3)
  - Application site erythema [None]
  - Application site scab [None]
  - Drug administered at inappropriate site [None]
